FAERS Safety Report 6387211-3 (Version None)
Quarter: 2009Q4

REPORT INFORMATION
  Report Type: 
  Country: None (occurrence: None)
  Receive Date: 20091002
  Receipt Date: 20090928
  Transmission Date: 20100525
  Serious: Yes (Death, Other)
  Sender: FDA-Public Use
  Company Number: US-BAXTER-2009BH012717

PATIENT
  Age: 76 Year
  Sex: Male

DRUGS (1)
  1. HEPARIN SODIUM INJECTION [Suspect]
     Indication: ARTERIAL THERAPEUTIC PROCEDURE
     Route: 042

REACTIONS (2)
  - DEATH [None]
  - MALAISE [None]
